FAERS Safety Report 13058773 (Version 1)
Quarter: 2016Q4

REPORT INFORMATION
  Report Type: Spontaneous
  Country: IT (occurrence: IT)
  Receive Date: 20161223
  Receipt Date: 20161223
  Transmission Date: 20170207
  Serious: Yes (Other)
  Sender: FDA-Public Use
  Company Number: IT-JAZZ-2016-IT-024405

PATIENT

DRUGS (10)
  1. PRIALT [Suspect]
     Active Substance: ZICONOTIDE ACETATE
     Indication: PRODUCT USED FOR UNKNOWN INDICATION
     Dosage: 0.007 ?G, QH
     Route: 037
     Dates: start: 20150218
  2. PRIALT [Suspect]
     Active Substance: ZICONOTIDE ACETATE
     Dosage: 0.007 ?G, QH
     Route: 037
     Dates: start: 20150304
  3. PRIALT [Suspect]
     Active Substance: ZICONOTIDE ACETATE
     Dosage: 0.004 ?G, QH
     Route: 037
     Dates: start: 20160307
  4. PRIALT [Suspect]
     Active Substance: ZICONOTIDE ACETATE
     Dosage: 0.004 ?G, QH
     Route: 037
     Dates: start: 20160827
  5. PRIALT [Suspect]
     Active Substance: ZICONOTIDE ACETATE
     Dosage: 0.004 ?G, QH
     Route: 037
     Dates: start: 20150316
  6. GABLOFEN [Suspect]
     Active Substance: BACLOFEN
     Dosage: 18.124 ?G, QH
     Route: 037
     Dates: start: 20150304
  7. GABLOFEN [Suspect]
     Active Substance: BACLOFEN
     Dosage: 9.709 ?G, QH
     Route: 037
     Dates: start: 20160307
  8. GABLOFEN [Suspect]
     Active Substance: BACLOFEN
     Dosage: 9.042 ?G, QH
     Route: 037
     Dates: start: 20150316
  9. GABLOFEN [Suspect]
     Active Substance: BACLOFEN
     Dosage: 9.709 ?G, QH
     Route: 037
     Dates: start: 20150827
  10. GABLOFEN [Suspect]
     Active Substance: BACLOFEN
     Indication: PRODUCT USED FOR UNKNOWN INDICATION
     Dosage: 18.124 ?G, QH
     Route: 037
     Dates: start: 20150218

REACTIONS (2)
  - Device issue [Unknown]
  - Coma [Unknown]
